FAERS Safety Report 24268832 (Version 2)
Quarter: 2024Q4

REPORT INFORMATION
  Report Type: Report from Study
  Country: US (occurrence: US)
  Receive Date: 20240830
  Receipt Date: 20241108
  Transmission Date: 20250115
  Serious: Yes (Other)
  Sender: ABBVIE
  Company Number: US-ABBVIE-5896417

PATIENT
  Sex: Female

DRUGS (1)
  1. HUMIRA [Suspect]
     Active Substance: ADALIMUMAB
     Indication: Psoriasis
     Route: 058
     Dates: start: 201804

REACTIONS (4)
  - Vaginal prolapse [Not Recovered/Not Resolved]
  - Localised infection [Unknown]
  - Vaginal disorder [Recovered/Resolved]
  - Solar lentigo [Not Recovered/Not Resolved]
